FAERS Safety Report 9869839 (Version 1)
Quarter: 2014Q1

REPORT INFORMATION
  Report Type: Spontaneous
  Country: US (occurrence: None)
  Receive Date: 20140203
  Receipt Date: 20140203
  Transmission Date: 20141002
  Serious: No
  Sender: FDA-Public Use
  Company Number: None

PATIENT
  Age: 66 Year
  Sex: Male
  Weight: 93.7 kg

DRUGS (1)
  1. AMBRISENTAN [Suspect]
     Dates: start: 20130808, end: 20131107

REACTIONS (2)
  - Headache [None]
  - Fatigue [None]
